FAERS Safety Report 5324613-8 (Version None)
Quarter: 2007Q2

REPORT INFORMATION
  Report Type: 
  Country: None (occurrence: None)
  Receive Date: 20070508
  Receipt Date: 20061106
  Transmission Date: 20071010
  Serious: Yes (Life-Threatening)
  Sender: FDA-Public Use
  Company Number: 805#1#2006-00104

PATIENT
  Age: 87 Year
  Sex: Female

DRUGS (5)
  1. ALPROSTADIL [Suspect]
     Indication: LUMBAR SPINAL STENOSIS
     Dosage: 60 MCG (60 MCG 1 IN 1 DAY (S)) INTRAVENOUS DRIP
     Route: 041
     Dates: start: 20061020, end: 20061031
  2. CANDESARTAN CILEXETIL (CANDERASTAN CILEXETIL) [Suspect]
     Indication: HYPERTENSION
     Dosage: ORAL
     Route: 048
  3. BENIDIPINE HYDROCHLORIDE (BENIDIPINE HYDROCHLORIDE) [Suspect]
     Indication: HYPERTENSION
     Dosage: ORAL
     Route: 048
  4. NEO VITACAIN (CALCIUM BROMIDE, CALCIUM PANTOTHENATE, CINCHOCAINE HYDRO [Suspect]
     Dosage: 1 DF TOPICAL
     Route: 061
  5. HYALURONATE SODIUM (HYALURONATE SODIUM) [Suspect]
     Dosage: 1 DF INTRA-ARTICULAR
     Route: 014

REACTIONS (2)
  - CARDIO-RESPIRATORY ARREST [None]
  - LOSS OF CONSCIOUSNESS [None]
